FAERS Safety Report 24095768 (Version 1)
Quarter: 2024Q3

REPORT INFORMATION
  Report Type: Other
  Country: GB (occurrence: GB)
  Receive Date: 20240716
  Receipt Date: 20240716
  Transmission Date: 20241017
  Serious: Yes (Other)
  Sender: MACLEODS
  Company Number: None

PATIENT

DRUGS (1)
  1. SILDENAFIL [Suspect]
     Active Substance: SILDENAFIL
     Indication: Product used for unknown indication
     Dosage: 50MG ONCE A DAY AT NIGHT
     Route: 065
     Dates: start: 20240201

REACTIONS (1)
  - Reperfusion injury [Recovered/Resolved]

NARRATIVE: CASE EVENT DATE: 20240201
